FAERS Safety Report 6329574-0 (Version None)
Quarter: 2009Q3

REPORT INFORMATION
  Report Type: 
  Country: None (occurrence: None)
  Receive Date: 20090825
  Receipt Date: 20090825
  Transmission Date: 20100115
  Serious: Yes (Other)
  Sender: FDA-Public Use
  Company Number: None

PATIENT
  Age: 68 Year
  Sex: Female
  Weight: 65.318 kg

DRUGS (4)
  1. METOCLOPRAMIDE 10 MG WAT [Suspect]
     Indication: CONSTIPATION
     Dosage: 1 2X DAILY PO
     Route: 048
     Dates: start: 20071115, end: 20071215
  2. METOCLOPRAMIDE 10 MG WAT [Suspect]
     Indication: GASTROOESOPHAGEAL REFLUX DISEASE
     Dosage: 1 2X DAILY PO
     Route: 048
     Dates: start: 20071115, end: 20071215
  3. METOCLOPRAMIDE 10 MG WAT [Suspect]
     Indication: CONSTIPATION
     Dosage: 1 2X DAILY PO
     Route: 048
     Dates: start: 20090627, end: 20090709
  4. METOCLOPRAMIDE 10 MG WAT [Suspect]
     Indication: GASTROOESOPHAGEAL REFLUX DISEASE
     Dosage: 1 2X DAILY PO
     Route: 048
     Dates: start: 20090627, end: 20090709

REACTIONS (10)
  - BILIARY DYSKINESIA [None]
  - BITE [None]
  - CRYING [None]
  - DEPRESSION [None]
  - DYSKINESIA [None]
  - GALLBLADDER DISORDER [None]
  - MOOD ALTERED [None]
  - MUSCLE SPASMS [None]
  - NAUSEA [None]
  - POLLAKIURIA [None]
